FAERS Safety Report 8597668-5 (Version None)
Quarter: 2012Q3

REPORT INFORMATION
  Report Type: 
  Country: None (occurrence: None)
  Receive Date: 20120816
  Receipt Date: 20120808
  Transmission Date: 20120928
  Serious: Yes (Hospitalization)
  Sender: FDA-Public Use
  Company Number: US-BAYER-2011-102215

PATIENT
  Age: 30 Year
  Sex: Female
  Weight: 57 kg

DRUGS (4)
  1. AVELOX [Concomitant]
     Indication: PNEUMONIA
  2. YAZ [Suspect]
     Dosage: UNK
     Dates: start: 20090701, end: 20090901
  3. PREDNISONE TAB [Concomitant]
  4. AVELOX [Concomitant]
     Indication: LUNG INFILTRATION
     Dosage: 400 MG, UNK
     Dates: start: 20091109

REACTIONS (4)
  - DYSPNOEA [None]
  - INJURY [None]
  - PNEUMONIA [None]
  - PULMONARY EMBOLISM [None]
